FAERS Safety Report 20237979 (Version 1)
Quarter: 2021Q4

REPORT INFORMATION
  Report Type: Spontaneous
  Country: US (occurrence: US)
  Receive Date: 20211228
  Receipt Date: 20211228
  Transmission Date: 20220303
  Serious: No
  Sender: FDA-Public Use
  Company Number: US-PERRIGO-21US001772

PATIENT
  Age: 67 Year
  Sex: Female
  Weight: 113.38 kg

DRUGS (3)
  1. TIOCONAZOLE [Suspect]
     Active Substance: TIOCONAZOLE
     Indication: Vulvovaginal mycotic infection
     Dosage: UNKNOWN, SINGLE
     Route: 067
     Dates: start: 20210129, end: 20210129
  2. TIOCONAZOLE [Suspect]
     Active Substance: TIOCONAZOLE
     Indication: Vulvovaginal pruritus
     Dosage: UNKNOWN, SINGLE
     Route: 061
     Dates: start: 20210129, end: 20210129
  3. SIMVASTATIN [Concomitant]
     Active Substance: SIMVASTATIN
     Indication: Blood cholesterol abnormal
     Dosage: UNK
     Route: 065

REACTIONS (3)
  - Vulvovaginal burning sensation [Recovered/Resolved]
  - Underdose [Recovered/Resolved]
  - Accidental exposure to product [Recovered/Resolved]

NARRATIVE: CASE EVENT DATE: 20210129
